FAERS Safety Report 26209527 (Version 1)
Quarter: 2025Q4

REPORT INFORMATION
  Report Type: Spontaneous
  Country: US (occurrence: US)
  Receive Date: 20251229
  Receipt Date: 20251229
  Transmission Date: 20260117
  Serious: No
  Sender: AMGEN
  Company Number: US-AMGEN-USASP2025254950

PATIENT
  Age: 66 Year
  Sex: Male

DRUGS (1)
  1. MVASI [Suspect]
     Active Substance: BEVACIZUMAB-AWWB
     Indication: Colon cancer
     Dosage: UNK (DOSE ORDERED: 350 MG)
     Route: 065

REACTIONS (2)
  - Illness [Unknown]
  - Contusion [Unknown]
